FAERS Safety Report 13412001 (Version 3)
Quarter: 2023Q2

REPORT INFORMATION
  Report Type: Spontaneous
  Country: US (occurrence: US)
  Receive Date: 20170406
  Receipt Date: 20230413
  Transmission Date: 20230722
  Serious: No
  Sender: FDA-Public Use
  Company Number: US-JNJFOC-20170316564

PATIENT
  Sex: Male

DRUGS (17)
  1. RISPERDAL [Suspect]
     Active Substance: RISPERIDONE
     Indication: Schizophrenia
     Route: 048
     Dates: start: 20061222
  2. RISPERDAL [Suspect]
     Active Substance: RISPERIDONE
     Indication: Anxiety
     Dosage: VARYING DOSES OF 0.5 MG, 1 MG, 3 MG 3.5 MG AND 4 MG
     Route: 048
     Dates: start: 20061226, end: 20130427
  3. RISPERDAL [Suspect]
     Active Substance: RISPERIDONE
     Indication: Depression
  4. RISPERDAL [Suspect]
     Active Substance: RISPERIDONE
     Indication: Alcohol abuse
  5. RISPERDAL [Suspect]
     Active Substance: RISPERIDONE
     Indication: Drug dependence
  6. RISPERDAL [Suspect]
     Active Substance: RISPERIDONE
     Indication: Hallucinations, mixed
  7. RISPERIDONE [Suspect]
     Active Substance: RISPERIDONE
     Indication: Schizophrenia
     Dosage: VARYING DOSES OF 1 MG AND 3 MG
     Route: 048
     Dates: start: 20061222, end: 20110301
  8. RISPERIDONE [Suspect]
     Active Substance: RISPERIDONE
     Indication: Anxiety
     Route: 048
     Dates: start: 20110301, end: 20110818
  9. RISPERIDONE [Suspect]
     Active Substance: RISPERIDONE
     Indication: Depression
     Route: 048
     Dates: start: 20120518, end: 20130422
  10. RISPERIDONE [Suspect]
     Active Substance: RISPERIDONE
     Indication: Alcohol abuse
  11. RISPERIDONE [Suspect]
     Active Substance: RISPERIDONE
     Indication: Drug dependence
  12. RISPERDAL [Suspect]
     Active Substance: RISPERIDONE
     Indication: Schizophrenia
     Route: 048
     Dates: start: 20120918, end: 20121031
  13. RISPERDAL [Suspect]
     Active Substance: RISPERIDONE
     Indication: Anxiety
  14. RISPERDAL [Suspect]
     Active Substance: RISPERIDONE
     Indication: Depression
  15. RISPERDAL [Suspect]
     Active Substance: RISPERIDONE
     Indication: Alcohol abuse
  16. RISPERDAL [Suspect]
     Active Substance: RISPERIDONE
     Indication: Drug dependence
  17. RISPERIDONE [Suspect]
     Active Substance: RISPERIDONE
     Indication: Product used for unknown indication
     Route: 048

REACTIONS (2)
  - Gynaecomastia [Unknown]
  - Emotional disorder [Unknown]
